FAERS Safety Report 25412693 (Version 2)
Quarter: 2025Q2

REPORT INFORMATION
  Report Type: Spontaneous
  Country: US (occurrence: US)
  Receive Date: 20250609
  Receipt Date: 20250616
  Transmission Date: 20250716
  Serious: Yes (Life-Threatening, Other)
  Sender: PFIZER
  Company Number: US-PFIZER INC-PV202500066088

PATIENT
  Age: 42 Year
  Sex: Female

DRUGS (3)
  1. NOREPINEPHRINE BITARTRATE [Suspect]
     Active Substance: NOREPINEPHRINE BITARTRATE
  2. PHENYLEPHRINE [Suspect]
     Active Substance: PHENYLEPHRINE
  3. VASOPRESSIN [Suspect]
     Active Substance: VASOPRESSIN

REACTIONS (1)
  - Drug ineffective [Unknown]
